FAERS Safety Report 23559000 (Version 1)
Quarter: 2024Q1

REPORT INFORMATION
  Report Type: Report from Study
  Country: US (occurrence: None)
  Receive Date: 20240223
  Receipt Date: 20240223
  Transmission Date: 20240410
  Serious: Yes (Other)
  Sender: FDA-Public Use
  Company Number: 2024A043497

PATIENT
  Age: 22470 Day
  Sex: Female

DRUGS (1)
  1. TAGRISSO [Suspect]
     Active Substance: OSIMERTINIB
     Indication: Lung carcinoma cell type unspecified stage 0
     Dosage: EVERY NIGHT AT BEDTIME
     Route: 048
     Dates: start: 202401

REACTIONS (4)
  - Foot fracture [Unknown]
  - Thrombosis [Unknown]
  - Pain in extremity [Unknown]
  - Gait disturbance [Unknown]
